FAERS Safety Report 9059531 (Version 1)
Quarter: 2013Q1

REPORT INFORMATION
  Report Type: Spontaneous
  Country: US (occurrence: US)
  Receive Date: 20130212
  Receipt Date: 20130212
  Transmission Date: 20140127
  Serious: Yes (Hospitalization)
  Sender: FDA-Public Use
  Company Number: US-BIOGENIDEC-2013BI012327

PATIENT
  Age: 36 Year
  Sex: Male

DRUGS (1)
  1. TYSABRI [Suspect]
     Indication: CROHN^S DISEASE
     Route: 042
     Dates: start: 20120815

REACTIONS (3)
  - Pancreatitis [Recovered/Resolved]
  - Pain [Recovered/Resolved]
  - Cholelithiasis [Recovered/Resolved]
